FAERS Safety Report 8189013-4 (Version None)
Quarter: 2012Q1

REPORT INFORMATION
  Report Type: 
  Country: None (occurrence: None)
  Receive Date: 20120307
  Receipt Date: 20120227
  Transmission Date: 20120608
  Serious: Yes (Hospitalization)
  Sender: FDA-Public Use
  Company Number: US-BIOGENIDEC-2012BI007301

PATIENT
  Sex: Male

DRUGS (2)
  1. AVONEX [Suspect]
     Indication: MULTIPLE SCLEROSIS
     Route: 030
     Dates: start: 20060514
  2. POTASSIUM CHLORIDE [Concomitant]
     Route: 048

REACTIONS (4)
  - FEELING HOT [None]
  - DIABETES MELLITUS [None]
  - CARDIAC DISORDER [None]
  - HEART VALVE INCOMPETENCE [None]
